FAERS Safety Report 10157448 (Version 1)
Quarter: 2014Q2

REPORT INFORMATION
  Report Type: Spontaneous
  Country: US (occurrence: US)
  Receive Date: 20140507
  Receipt Date: 20140507
  Transmission Date: 20141212
  Serious: No
  Sender: FDA-Public Use
  Company Number: US-BAYER-2014-065782

PATIENT
  Sex: Female

DRUGS (3)
  1. OCELLA [Suspect]
     Indication: CONTRACEPTION
     Dosage: UNK
     Dates: start: 2011
  2. OCELLA [Suspect]
     Indication: PREMENSTRUAL DYSPHORIC DISORDER
  3. GIANVI [Suspect]
     Dosage: UNK
     Dates: start: 2012

REACTIONS (4)
  - Headache [None]
  - Skin disorder [None]
  - Nausea [None]
  - Hunger [None]
